FAERS Safety Report 6992129-9 (Version None)
Quarter: 2010Q3

REPORT INFORMATION
  Report Type: 
  Country: None (occurrence: None)
  Receive Date: 20100916
  Receipt Date: 20100916
  Transmission Date: 20110219
  Serious: No
  Sender: FDA-Public Use
  Company Number: None

PATIENT
  Sex: Female
  Weight: 59.8748 kg

DRUGS (1)
  1. AMOXICILLIN [Suspect]
     Indication: URINARY TRACT INFECTION
     Dosage: 1 EVERY TWELVE HOURS PO
     Route: 048
     Dates: start: 20100910, end: 20100911

REACTIONS (6)
  - AGITATION [None]
  - ANXIETY [None]
  - HALLUCINATION [None]
  - NERVOUSNESS [None]
  - PHOTOPSIA [None]
  - PRODUCT QUALITY ISSUE [None]
